FAERS Safety Report 11068427 (Version 2)
Quarter: 2015Q2

REPORT INFORMATION
  Report Type: Spontaneous
  Country: US (occurrence: US)
  Receive Date: 20150427
  Receipt Date: 20150529
  Transmission Date: 20150821
  Serious: No
  Sender: FDA-Public Use
  Company Number: US-ASTRAZENECA-2015SE37323

PATIENT
  Age: 26713 Day
  Sex: Female

DRUGS (1)
  1. PULMICORT TURBUHALER [Suspect]
     Active Substance: BUDESONIDE
     Indication: BRONCHITIS
     Dosage: 90 MCG 2 PUFFS TWICE DAILY
     Route: 055
     Dates: start: 20150410

REACTIONS (5)
  - Arthritis [Unknown]
  - Off label use [Unknown]
  - Cough [Unknown]
  - Drug ineffective [Unknown]
  - Thinking abnormal [Unknown]

NARRATIVE: CASE EVENT DATE: 20150410
